FAERS Safety Report 8109842-2 (Version None)
Quarter: 2012Q1

REPORT INFORMATION
  Report Type: 
  Country: None (occurrence: None)
  Receive Date: 20120202
  Receipt Date: 20120120
  Transmission Date: 20120608
  Serious: No
  Sender: FDA-Public Use
  Company Number: US-AMGEN-USASP2012002991

PATIENT
  Age: 44 Year
  Sex: Female
  Weight: 76.644 kg

DRUGS (4)
  1. RELAFEN [Concomitant]
     Indication: ARTHRITIS
     Dosage: 750 MG, BID
     Route: 048
  2. METHOTREXATE [Concomitant]
     Indication: ARTHRITIS
     Dosage: 20 MG, QWK
     Route: 048
  3. ENBREL [Suspect]
     Indication: RHEUMATOID ARTHRITIS
     Dosage: 50 MG, QWK
     Route: 058
     Dates: start: 20111219
  4. FOLIC ACID [Concomitant]
     Indication: ARTHRITIS
     Dosage: 1 MG, QD
     Route: 048

REACTIONS (8)
  - SINUS HEADACHE [None]
  - INJECTION SITE SWELLING [None]
  - INJECTION SITE ERYTHEMA [None]
  - PYREXIA [None]
  - INJECTION SITE REACTION [None]
  - INJECTION SITE PRURITUS [None]
  - INJECTION SITE RASH [None]
  - INJECTION SITE WARMTH [None]
